FAERS Safety Report 4616083-X (Version None)
Quarter: 2005Q1

REPORT INFORMATION
  Report Type: 
  Country: None (occurrence: None)
  Receive Date: 20050321
  Receipt Date: 20050311
  Transmission Date: 20050727
  Serious: Yes (Hospitalization, Other)
  Sender: FDA-Public Use
  Company Number: 2005-01-0007

PATIENT
  Age: 91 Year
  Sex: Female

DRUGS (10)
  1. DIPROSONE [Suspect]
     Dosage: TOP-DERM
     Route: 061
     Dates: start: 20040806, end: 20040808
  2. SOLUPRED [Suspect]
     Dosage: ORAL
     Route: 048
     Dates: start: 20040805, end: 20040808
  3. TANAKAN [Suspect]
     Dosage: TID ORAL
     Route: 048
     Dates: end: 20040810
  4. NOCTRAN 10 TABLETS [Suspect]
     Indication: SLEEP DISORDER
     Dosage: 10 MG QD ORAL
     Route: 048
     Dates: end: 20040810
  5. ORBENIN CAP [Suspect]
     Indication: EAR PRURITUS
     Dosage: 500 MG BID ORAL
     Route: 048
     Dates: start: 20040806, end: 20040808
  6. JECOPEPTOL ORAL POWDER [Suspect]
     Dosage: ORAL
     Route: 048
  7. VOLTAREN [Concomitant]
  8. BEPANTHEN [Concomitant]
  9. GLYCEROL 2.6% [Concomitant]
  10. DAFALGAN [Concomitant]

REACTIONS (9)
  - BULLOUS IMPETIGO [None]
  - DERMATITIS BULLOUS [None]
  - PNEUMONIA STAPHYLOCOCCAL [None]
  - PYREXIA [None]
  - SEPSIS [None]
  - SKIN ATROPHY [None]
  - SLEEP DISORDER [None]
  - STAPHYLOCOCCAL IMPETIGO [None]
  - STAPHYLOCOCCAL INFECTION [None]
